FAERS Safety Report 26212349 (Version 1)
Quarter: 2025Q4

REPORT INFORMATION
  Report Type: Spontaneous
  Country: TH (occurrence: TH)
  Receive Date: 20251230
  Receipt Date: 20251230
  Transmission Date: 20260118
  Serious: Yes (Other)
  Sender: ROCHE
  Company Number: TH-ROCHE-10000470492

PATIENT

DRUGS (1)
  1. ALECTINIB [Suspect]
     Active Substance: ALECTINIB
     Indication: Product used for unknown indication

REACTIONS (1)
  - Cataract [Unknown]
